FAERS Safety Report 13108908 (Version 1)
Quarter: 2017Q1

REPORT INFORMATION
  Report Type: Spontaneous
  Country: US (occurrence: US)
  Receive Date: 20170112
  Receipt Date: 20170112
  Transmission Date: 20170428
  Serious: Yes (Other)
  Sender: FDA-Public Use
  Company Number: US-GLAXOSMITHKLINE-US2017003106

PATIENT
  Sex: Female

DRUGS (3)
  1. TRILEPTAL [Concomitant]
     Active Substance: OXCARBAZEPINE
     Dosage: 150 MG, QD
  2. LAMOTRIGINE. [Suspect]
     Active Substance: LAMOTRIGINE
     Indication: EPILEPSY
     Dosage: 200 MG, 1D
     Route: 048
     Dates: start: 2008
  3. LAMICTAL [Suspect]
     Active Substance: LAMOTRIGINE
     Indication: EPILEPSY
     Dosage: UNK

REACTIONS (7)
  - Hallucination, auditory [Recovered/Resolved]
  - Personality change [Recovered/Resolved]
  - Temporal lobe epilepsy [Unknown]
  - Somnolence [Recovered/Resolved]
  - Epilepsy [Unknown]
  - Amnesia [Recovered/Resolved]
  - Seizure [Recovering/Resolving]
